FAERS Safety Report 9393623 (Version 2)
Quarter: 2013Q3

REPORT INFORMATION
  Report Type: Report from Study
  Country: US (occurrence: US)
  Receive Date: 20130710
  Receipt Date: 20130802
  Transmission Date: 20140515
  Serious: Yes (Hospitalization)
  Sender: FDA-Public Use
  Company Number: US-ABBOTT-13P-163-1114914-00

PATIENT
  Age: 29 Year
  Sex: Female
  Weight: 70.82 kg

DRUGS (8)
  1. HUMIRA [Suspect]
     Indication: CROHN^S DISEASE
     Dates: start: 201304
  2. MIRENA [Suspect]
     Indication: CONTRACEPTION
     Dates: start: 20130626, end: 20130630
  3. FOLIC ACID [Concomitant]
     Indication: VITAMIN SUPPLEMENTATION
  4. BIOTIN [Concomitant]
     Indication: VITAMIN SUPPLEMENTATION
  5. VITAMIN C [Concomitant]
     Indication: VITAMIN SUPPLEMENTATION
  6. SLIPPERY ELM [Concomitant]
     Indication: PHYTOTHERAPY
  7. PROBIOTICS [Concomitant]
     Indication: PRODUCT USED FOR UNKNOWN INDICATION
  8. VITAMIN B12 [Concomitant]
     Indication: PRODUCT USED FOR UNKNOWN INDICATION

REACTIONS (6)
  - Pyrexia [Recovered/Resolved]
  - Nausea [Recovered/Resolved]
  - Chills [Recovered/Resolved]
  - Pain [Recovered/Resolved]
  - Medical device removal [Unknown]
  - Alopecia [Unknown]
